FAERS Safety Report 6119108-8 (Version None)
Quarter: 2009Q1

REPORT INFORMATION
  Report Type: 
  Country: None (occurrence: None)
  Receive Date: 20090311
  Receipt Date: 20090224
  Transmission Date: 20090719
  Serious: Yes (Disabling, Other)
  Sender: FDA-Public Use
  Company Number: 2009S1003286

PATIENT
  Sex: Female
  Weight: 58 kg

DRUGS (5)
  1. ALENDRONIC ACID (ALENDRONIC ACID) (70 MG) [Suspect]
     Indication: OSTEOPOROSIS
     Dosage: 70 MG;ORAL
     Route: 048
     Dates: start: 20010711, end: 20081113
  2. BENDROFLUAZIDE [Concomitant]
  3. LOSARTAN [Concomitant]
  4. PROPRANOLOL [Concomitant]
  5. SIMVASTATIN [Concomitant]

REACTIONS (5)
  - AURA [None]
  - CONDITION AGGRAVATED [None]
  - DIZZINESS [None]
  - MIGRAINE [None]
  - VISUAL IMPAIRMENT [None]
